FAERS Safety Report 7909001-X (Version None)
Quarter: 2011Q4

REPORT INFORMATION
  Report Type: 
  Country: None (occurrence: None)
  Receive Date: 20111111
  Receipt Date: 20111103
  Transmission Date: 20120403
  Serious: Yes (Death, Other)
  Sender: FDA-Public Use
  Company Number: PHHY2011CO097424

PATIENT
  Sex: Male

DRUGS (1)
  1. TASIGNA [Suspect]
     Indication: CHRONIC MYELOID LEUKAEMIA
     Dosage: 800 MG, DAILY
     Route: 048
     Dates: start: 20100818, end: 20111001

REACTIONS (6)
  - SYNCOPE [None]
  - HEADACHE [None]
  - CHRONIC MYELOID LEUKAEMIA [None]
  - COUGH [None]
  - INTRA-ABDOMINAL HAEMATOMA [None]
  - HAEMORRHAGE [None]
